APPROVED DRUG PRODUCT: CARNITOR
Active Ingredient: LEVOCARNITINE
Strength: 1GM/10ML
Dosage Form/Route: SOLUTION;ORAL
Application: N019257 | Product #001 | TE Code: AA
Applicant: LEADIANT BIOSCIENCES INC
Approved: Apr 10, 1986 | RLD: Yes | RS: Yes | Type: RX